FAERS Safety Report 9393353 (Version 7)
Quarter: 2013Q4

REPORT INFORMATION
  Report Type: Spontaneous
  Country: US (occurrence: US)
  Receive Date: 20130710
  Receipt Date: 20131125
  Transmission Date: 20140711
  Serious: Yes (Hospitalization, Other)
  Sender: FDA-Public Use
  Company Number: US-JNJFOC-20130618628

PATIENT
  Age: 70 Year
  Sex: Female
  Weight: 78.02 kg

DRUGS (19)
  1. XARELTO [Suspect]
     Indication: CEREBROVASCULAR ACCIDENT PROPHYLAXIS
     Route: 048
     Dates: start: 20130221
  2. XARELTO [Suspect]
     Indication: CEREBROVASCULAR ACCIDENT PROPHYLAXIS
     Route: 048
     Dates: start: 20130605, end: 20130612
  3. XARELTO [Suspect]
     Indication: CEREBROVASCULAR ACCIDENT PROPHYLAXIS
     Route: 048
     Dates: start: 20130719
  4. XARELTO [Suspect]
     Indication: CEREBROVASCULAR ACCIDENT PROPHYLAXIS
     Route: 048
     Dates: start: 20130722
  5. XARELTO [Suspect]
     Indication: ATRIAL FIBRILLATION
     Route: 048
     Dates: start: 20130722
  6. XARELTO [Suspect]
     Indication: ATRIAL FIBRILLATION
     Route: 048
     Dates: start: 20130719
  7. XARELTO [Suspect]
     Indication: ATRIAL FIBRILLATION
     Route: 048
     Dates: start: 20130221
  8. XARELTO [Suspect]
     Indication: ATRIAL FIBRILLATION
     Route: 048
     Dates: start: 20130605, end: 20130612
  9. ASPIRIN [Suspect]
     Indication: ATRIAL FIBRILLATION
     Route: 048
     Dates: start: 2011
  10. CALCIUM CITRATE + VITAMIN D [Concomitant]
     Dosage: 250-100 MG-UNIT TABLETS, VIT D 50000 IU MONTHLY
     Route: 065
  11. SYNTHROID [Concomitant]
     Indication: HYPOTHYROIDISM
     Dosage: 0.15 UNSPECIFIED
     Route: 048
  12. OMEPRAZOLE [Concomitant]
     Indication: GASTROOESOPHAGEAL REFLUX DISEASE
     Route: 048
     Dates: start: 2007
  13. ZETIA [Concomitant]
     Indication: BLOOD CHOLESTEROL
     Dosage: SMALLEST DOSAGE
     Route: 048
  14. LIPITOR [Concomitant]
     Indication: BLOOD CHOLESTEROL
     Dosage: 5MG TABLET
     Route: 048
  15. MULTAQ [Concomitant]
     Indication: ARRHYTHMIA PROPHYLAXIS
     Route: 048
     Dates: start: 20130221
  16. CALCIUM [Concomitant]
     Indication: BONE DISORDER
     Route: 065
  17. ATENOLOL [Concomitant]
     Indication: BLOOD PRESSURE ABNORMAL
     Dosage: 25MG (1/2)
     Route: 065
     Dates: start: 20130221
  18. PROPRANOLOL HCL [Concomitant]
     Dosage: AS NEEDED
     Route: 065
  19. RANEXA [Concomitant]
     Indication: CHEST PAIN
     Route: 065

REACTIONS (4)
  - Renal haemorrhage [Recovered/Resolved]
  - Haematoma [Recovered/Resolved]
  - Gingival bleeding [Recovered/Resolved]
  - Wound [Recovered/Resolved]
